FAERS Safety Report 9999602 (Version 1)
Quarter: 2014Q1

REPORT INFORMATION
  Report Type: Spontaneous
  Country: US (occurrence: None)
  Receive Date: 20140228
  Receipt Date: 20140228
  Transmission Date: 20141002
  Serious: Yes (Other)
  Sender: FDA-Public Use
  Company Number: PHEH2013US009419

PATIENT
  Age: 38 Year
  Sex: Female

DRUGS (8)
  1. TEGRETOL (CARBAMAZEPINE) UNKNOWN [Suspect]
     Dosage: UNK
  2. GEODON [Suspect]
     Indication: ANXIETY DISORDER
     Route: 048
  3. OMEPRAZOLE (OMEPRAZOLE) [Concomitant]
  4. NEURONTIN (GABAPENTIN) [Concomitant]
  5. ZOCOR (SIMVASTATIN) [Concomitant]
  6. DIAZEPAM (DIAZEPAM) [Concomitant]
  7. CELEXA (CITALOPRAM HYDROBROMIDE) [Concomitant]
  8. ATENOLOL (ATENOLOL) [Concomitant]

REACTIONS (3)
  - Vision blurred [None]
  - Fall [None]
  - Joint injury [None]
